FAERS Safety Report 13574212 (Version 2)
Quarter: 2017Q4

REPORT INFORMATION
  Report Type: Spontaneous
  Country: US (occurrence: US)
  Receive Date: 20170523
  Receipt Date: 20171025
  Transmission Date: 20180320
  Serious: No
  Sender: FDA-Public Use
  Company Number: US-KERYX BIOPHARMACEUTICALS, INC.-2017US002641

PATIENT
  Age: 35 Year
  Sex: Male
  Weight: 55 kg

DRUGS (1)
  1. AURYXIA [Suspect]
     Active Substance: TETRAFERRIC TRICITRATE DECAHYDRATE
     Indication: BLOOD PHOSPHORUS INCREASED
     Dosage: 2 G (2 TABLETS), TID BEFORE MEALS
     Route: 048
     Dates: start: 20170203, end: 20170301

REACTIONS (2)
  - Vomiting [Recovered/Resolved]
  - Faeces discoloured [Recovered/Resolved]

NARRATIVE: CASE EVENT DATE: 201703
